FAERS Safety Report 6505089-1 (Version None)
Quarter: 2009Q4

REPORT INFORMATION
  Report Type: 
  Country: None (occurrence: None)
  Receive Date: 20091201
  Receipt Date: 20090811
  Transmission Date: 20100525
  Serious: Yes (Hospitalization)
  Sender: FDA-Public Use
  Company Number: 2008-178224-NL

PATIENT
  Age: 21 Year
  Sex: Female
  Weight: 77.9 kg

DRUGS (4)
  1. NUVARING [Suspect]
     Indication: CONTRACEPTION
     Dosage: 1 DF;VAG
     Route: 067
     Dates: start: 20060501, end: 20070907
  2. NUVARING [Suspect]
     Indication: MENSTRUATION IRREGULAR
     Dosage: 1 DF;VAG
     Route: 067
     Dates: start: 20060501, end: 20070907
  3. LEVOXYL [Concomitant]
  4. TRILEPTAL [Concomitant]

REACTIONS (3)
  - ANXIETY [None]
  - OFF LABEL USE [None]
  - PULMONARY EMBOLISM [None]
